FAERS Safety Report 17819792 (Version 2)
Quarter: 2020Q2

REPORT INFORMATION
  Report Type: Spontaneous
  Country: US (occurrence: US)
  Receive Date: 20200524
  Receipt Date: 20200525
  Transmission Date: 20200714
  Serious: Yes (Other)
  Sender: FDA-Public Use
  Company Number: US-CELGENEUS-USA-20200507575

PATIENT
  Age: 81 Year
  Sex: Male

DRUGS (2)
  1. OTEZLA [Suspect]
     Active Substance: APREMILAST
     Indication: PSORIATIC ARTHROPATHY
     Dosage: 60 MILLIGRAM
     Route: 048
     Dates: start: 20200302
  2. OTEZLA [Suspect]
     Active Substance: APREMILAST
     Indication: PSORIASIS

REACTIONS (3)
  - Back pain [Unknown]
  - Haematochezia [Unknown]
  - Psoriasis [Unknown]

NARRATIVE: CASE EVENT DATE: 202005
